FAERS Safety Report 6145480-9 (Version None)
Quarter: 2009Q2

REPORT INFORMATION
  Report Type: 
  Country: None (occurrence: None)
  Receive Date: 20090406
  Receipt Date: 20090325
  Transmission Date: 20091009
  Serious: Yes (Other)
  Sender: FDA-Public Use
  Company Number: KR-PFIZER INC-2009189600

PATIENT

DRUGS (3)
  1. LYRICA [Suspect]
     Indication: PAIN IN EXTREMITY
     Dosage: UNK
     Route: 048
  2. SENSIVAL [Concomitant]
     Indication: PAIN IN EXTREMITY
     Dosage: 10 MG, 1X/DAY
     Route: 048
  3. RIVOTRIL [Concomitant]
     Indication: PAIN IN EXTREMITY
     Dosage: UNK
     Route: 048

REACTIONS (2)
  - ASTHENIA [None]
  - HAND DEFORMITY [None]
